FAERS Safety Report 7381770-X (Version None)
Quarter: 2011Q1

REPORT INFORMATION
  Report Type: 
  Country: None (occurrence: None)
  Receive Date: 20110329
  Receipt Date: 20110321
  Transmission Date: 20110831
  Serious: Yes (Hospitalization)
  Sender: FDA-Public Use
  Company Number: US-GILEAD-2011-0037236

PATIENT
  Sex: Male

DRUGS (4)
  1. LETAIRIS [Suspect]
     Indication: PORTOPULMONARY HYPERTENSION
  2. LETAIRIS [Suspect]
     Indication: EMPHYSEMA
  3. LETAIRIS [Suspect]
     Indication: TOBACCO ABUSE
  4. LETAIRIS [Suspect]
     Indication: PULMONARY HYPERTENSION
     Route: 048
     Dates: start: 20101201

REACTIONS (1)
  - ACUTE RESPIRATORY FAILURE [None]
